FAERS Safety Report 8543579-0 (Version None)
Quarter: 2012Q3

REPORT INFORMATION
  Report Type: 
  Country: None (occurrence: None)
  Receive Date: 20120727
  Receipt Date: 20120713
  Transmission Date: 20120928
  Serious: Yes (Hospitalization)
  Sender: FDA-Public Use
  Company Number: US-MYLANLABS-2012S1014479

PATIENT
  Age: 62 Year
  Sex: Female

DRUGS (2)
  1. CARBOPLATIN [Suspect]
     Indication: OVARIAN CANCER
     Dosage: 6 CYCLES
     Route: 065
  2. PACLITAXEL [Suspect]
     Indication: OVARIAN CANCER
     Dosage: 6 CYCLES
     Route: 065

REACTIONS (6)
  - PULMONARY EMBOLISM [None]
  - ENDOCARDITIS NONINFECTIVE [None]
  - DEEP VEIN THROMBOSIS [None]
  - EMBOLIC STROKE [None]
  - NEUROPATHY PERIPHERAL [None]
  - RENAL INFARCT [None]
